FAERS Safety Report 20065353 (Version 2)
Quarter: 2022Q1

REPORT INFORMATION
  Report Type: Spontaneous
  Country: PH (occurrence: None)
  Receive Date: 20211113
  Receipt Date: 20220127
  Transmission Date: 20220423
  Serious: Yes (Death)
  Sender: FDA-Public Use
  Company Number: PH-ROCHE-2952443

PATIENT
  Sex: Male

DRUGS (1)
  1. ACTEMRA [Suspect]
     Active Substance: TOCILIZUMAB
     Indication: COVID-19
     Dosage: Q12 HOURS FOR 2 DOSES
     Route: 042
     Dates: start: 20210516, end: 20210517

REACTIONS (3)
  - Off label use [Unknown]
  - COVID-19 pneumonia [Fatal]
  - Pulmonary embolism [Fatal]
